FAERS Safety Report 15260491 (Version 8)
Quarter: 2019Q1

REPORT INFORMATION
  Report Type: Report from Study
  Country: CA (occurrence: CA)
  Receive Date: 20180809
  Receipt Date: 20190307
  Transmission Date: 20190417
  Serious: Yes (Other)
  Sender: FDA-Public Use
  Company Number: PHHY2018CA037910

PATIENT
  Age: 60 Year
  Sex: Female

DRUGS (7)
  1. COSENTYX [Suspect]
     Active Substance: SECUKINUMAB
     Dosage: 300 MG, QMO
     Route: 058
     Dates: start: 20190106
  2. COSENTYX [Suspect]
     Active Substance: SECUKINUMAB
     Indication: PSORIATIC ARTHROPATHY
     Dosage: 300 MG, QW
     Route: 058
     Dates: start: 20180627
  3. PREDNISONE. [Concomitant]
     Active Substance: PREDNISONE
     Indication: PRODUCT USED FOR UNKNOWN INDICATION
     Route: 065
  4. METHOTREXATE. [Suspect]
     Active Substance: METHOTREXATE
     Indication: PRODUCT USED FOR UNKNOWN INDICATION
     Dosage: UNK
     Route: 065
     Dates: start: 2014, end: 20180429
  5. GABAPENTIN. [Concomitant]
     Active Substance: GABAPENTIN
     Indication: PRODUCT USED FOR UNKNOWN INDICATION
     Dosage: UNK UNK, BID
     Route: 065
  6. COSENTYX [Suspect]
     Active Substance: SECUKINUMAB
     Dosage: 300 MG, QMO
     Route: 058
     Dates: start: 20180728
  7. LEFLUNOMIDE. [Suspect]
     Active Substance: LEFLUNOMIDE
     Indication: PRODUCT USED FOR UNKNOWN INDICATION
     Route: 065

REACTIONS (34)
  - Oropharyngeal pain [Unknown]
  - Oral pain [Unknown]
  - Diarrhoea [Unknown]
  - Sinus disorder [Unknown]
  - Muscle spasms [Unknown]
  - Stomatitis [Recovering/Resolving]
  - Constipation [Recovered/Resolved]
  - Acne [Unknown]
  - Back pain [Unknown]
  - Tonsillar inflammation [Unknown]
  - Tongue injury [Unknown]
  - Pelvic pain [Unknown]
  - Fatigue [Unknown]
  - Decreased appetite [Unknown]
  - Nasopharyngitis [Unknown]
  - Pain [Unknown]
  - Throat tightness [Unknown]
  - Dyspnoea [Unknown]
  - Dry mouth [Unknown]
  - Pharyngeal erythema [Unknown]
  - Hypokinesia [Unknown]
  - Nerve compression [Unknown]
  - Tongue coated [Unknown]
  - Nasal discomfort [Unknown]
  - Pyrexia [Unknown]
  - Cough [Unknown]
  - Headache [Unknown]
  - Respiratory tract infection [Unknown]
  - Middle insomnia [Unknown]
  - Paraesthesia [Unknown]
  - Myalgia [Recovering/Resolving]
  - Malaise [Unknown]
  - Ear infection [Unknown]
  - Hypogeusia [Recovering/Resolving]

NARRATIVE: CASE EVENT DATE: 20180627
